FAERS Safety Report 9864007 (Version 1)
Quarter: 2014Q1

REPORT INFORMATION
  Report Type: Report from Study
  Country: VE (occurrence: VE)
  Receive Date: 20140203
  Receipt Date: 20140203
  Transmission Date: 20141002
  Serious: Yes (Other)
  Sender: FDA-Public Use
  Company Number: PHHY2014VE012077

PATIENT
  Age: 35 Year
  Sex: Male

DRUGS (1)
  1. SANDOSTATIN LAR [Suspect]
     Indication: ENDOCRINE NEOPLASM
     Dosage: 30 MG, MONTHLY
     Route: 030
     Dates: start: 20120502, end: 201305

REACTIONS (3)
  - Neoplasm [Recovering/Resolving]
  - Cough [Not Recovered/Not Resolved]
  - Drug administration error [Unknown]
